FAERS Safety Report 7350096-2 (Version None)
Quarter: 2011Q1

REPORT INFORMATION
  Report Type: 
  Country: None (occurrence: None)
  Receive Date: 20110314
  Receipt Date: 20110304
  Transmission Date: 20110831
  Serious: Yes (Hospitalization)
  Sender: FDA-Public Use
  Company Number: A0894996A

PATIENT
  Age: 65 Year
  Sex: Female
  Weight: 92.7 kg

DRUGS (9)
  1. AVANDIA [Suspect]
     Dosage: 4MG TWICE PER DAY
     Route: 048
     Dates: start: 20001113, end: 20060410
  2. LIPITOR [Concomitant]
  3. PROVERA [Concomitant]
  4. DITROPAN [Concomitant]
  5. PREMARIN [Concomitant]
  6. SYNTHROID [Concomitant]
  7. AMARYL [Concomitant]
  8. LOPERAMIDE [Concomitant]
  9. ZEBETA [Concomitant]

REACTIONS (3)
  - ACUTE MYOCARDIAL INFARCTION [None]
  - CARDIAC FAILURE CONGESTIVE [None]
  - ATRIAL FIBRILLATION [None]
